FAERS Safety Report 8677755 (Version 2)
Quarter: 2013Q4

REPORT INFORMATION
  Report Type: Spontaneous
  Country: US (occurrence: US)
  Receive Date: 20120723
  Receipt Date: 20131031
  Transmission Date: 20140711
  Serious: Yes (Other)
  Sender: FDA-Public Use
  Company Number: US-009507513-1206USA03932

PATIENT
  Age: 4 Year
  Sex: Male
  Weight: 25 kg

DRUGS (1)
  1. SINGULAIR [Suspect]
     Indication: ASTHMA
     Route: 048
     Dates: start: 20120213, end: 20120226

REACTIONS (6)
  - Abnormal behaviour [Unknown]
  - Aggression [Unknown]
  - Agitation [Unknown]
  - Educational problem [Unknown]
  - Hostility [Unknown]
  - Irritability [Unknown]
